FAERS Safety Report 9631415 (Version 1)
Quarter: 2013Q4

REPORT INFORMATION
  Report Type: Spontaneous
  Country: IT (occurrence: None)
  Receive Date: 20131016
  Receipt Date: 20131016
  Transmission Date: 20140711
  Serious: Yes (Other)
  Sender: FDA-Public Use
  Company Number: AUR-APL-2013-08586

PATIENT
  Sex: Male

DRUGS (1)
  1. MELOXICAM (MELOXICAM) [Suspect]
     Indication: PRODUCT USED FOR UNKNOWN INDICATION

REACTIONS (6)
  - Suffocation feeling [None]
  - Erythema [None]
  - Laryngeal oedema [None]
  - Nausea [None]
  - Syncope [None]
  - Tongue oedema [None]
